APPROVED DRUG PRODUCT: BRETYLOL
Active Ingredient: BRETYLIUM TOSYLATE
Strength: 50MG/ML
Dosage Form/Route: INJECTABLE;INJECTION
Application: N017954 | Product #001
Applicant: HOSPIRA INC
Approved: Approved Prior to Jan 1, 1982 | RLD: No | RS: No | Type: DISCN